FAERS Safety Report 14631098 (Version 1)
Quarter: 2018Q1

REPORT INFORMATION
  Report Type: Spontaneous
  Country: US (occurrence: US)
  Receive Date: 20180313
  Receipt Date: 20180313
  Transmission Date: 20180509
  Serious: No
  Sender: FDA-Public Use
  Company Number: US-TEVA-798933ACC

PATIENT
  Age: 7 Year

DRUGS (1)
  1. AMOXICILLIN. [Suspect]
     Active Substance: AMOXICILLIN
     Dosage: DOSE STRENGTH:  400 MG/5 ML

REACTIONS (2)
  - Dysphagia [Unknown]
  - Drug intolerance [Unknown]
